FAERS Safety Report 5017895-3 (Version None)
Quarter: 2006Q2

REPORT INFORMATION
  Report Type: 
  Country: None (occurrence: None)
  Receive Date: 20060602
  Receipt Date: 20060602
  Transmission Date: 20061013
  Serious: Yes (Death, Life-Threatening, Hospitalization)
  Sender: FDA-Public Use
  Company Number: None

PATIENT
  Sex: Female
  Weight: 57.1 kg

DRUGS (8)
  1. ZOMETA [Suspect]
     Indication: GLIOBLASTOMA MULTIFORME
     Dosage: 4MG Q 3 MONTHS IV
     Route: 042
     Dates: start: 20060529
  2. DILANTIN [Concomitant]
  3. PEPCID [Concomitant]
  4. DECADRON [Concomitant]
  5. FLORINEF [Concomitant]
  6. MICARDIS [Concomitant]
  7. HUMALOG [Concomitant]
  8. LANTUS [Concomitant]

REACTIONS (5)
  - BRAIN HERNIATION [None]
  - FATIGUE [None]
  - PYREXIA [None]
  - RESPIRATORY ARREST [None]
  - SOMNOLENCE [None]
